FAERS Safety Report 9764248 (Version 4)
Quarter: 2014Q1

REPORT INFORMATION
  Report Type: Spontaneous
  Country: GB (occurrence: GB)
  Receive Date: 20131216
  Receipt Date: 20140326
  Transmission Date: 20141002
  Serious: Yes (Death, Other)
  Sender: FDA-Public Use
  Company Number: PHFR2013GB007177

PATIENT
  Sex: Female

DRUGS (8)
  1. CLOZARIL [Suspect]
     Indication: SCHIZOPHRENIA
     Dosage: UNK
     Route: 048
     Dates: start: 20010701
  2. AMISULPRIDE [Concomitant]
     Dosage: UNK UKN, UNK
  3. SERTRALINE [Concomitant]
     Dosage: UNK UKN, UNK
  4. THYROXINE [Concomitant]
     Dosage: UNK UKN, UNK
  5. TOLTERODINE [Concomitant]
     Dosage: UNK UKN, UNK
  6. ALENDRONIC ACID [Concomitant]
     Dosage: UNK UKN, UNK
  7. FLUTICASONE W/SALMETEROL [Concomitant]
     Dosage: UNK UKN, UNK
  8. MOVICOL [Concomitant]
     Dosage: UNK UKN, UNK

REACTIONS (6)
  - Emphysema [Fatal]
  - Infective exacerbation of chronic obstructive airways disease [Fatal]
  - Respiratory failure [Fatal]
  - Lung disorder [Fatal]
  - Chronic obstructive pulmonary disease [Unknown]
  - General physical health deterioration [Unknown]
